FAERS Safety Report 13873891 (Version 1)
Quarter: 2017Q3

REPORT INFORMATION
  Report Type: Spontaneous
  Country: US (occurrence: US)
  Receive Date: 20170816
  Receipt Date: 20170816
  Transmission Date: 20171127
  Serious: No
  Sender: FDA-Public Use
  Company Number: US-INTERPRAG-PM-OCA2017-00521

PATIENT

DRUGS (11)
  1. RIFAMATE [Concomitant]
     Active Substance: ISONIAZID\RIFAMPIN
  2. RIFAMPIN. [Concomitant]
     Active Substance: RIFAMPIN
  3. AZATHIOPRINE. [Concomitant]
     Active Substance: AZATHIOPRINE
  4. FLUTICASONE. [Concomitant]
     Active Substance: FLUTICASONE
  5. CHOLESTYRAMIN [Concomitant]
  6. MELOXICAM. [Concomitant]
     Active Substance: MELOXICAM
  7. OCALIVA [Suspect]
     Active Substance: OBETICHOLIC ACID
     Indication: BILIARY CIRRHOSIS PRIMARY
     Dosage: 5 MG, QD
     Route: 048
     Dates: start: 20170418
  8. PREDNISONE. [Concomitant]
     Active Substance: PREDNISONE
  9. DOXEPIN [Concomitant]
     Active Substance: DOXEPIN
  10. HYDROXYZINE [Concomitant]
     Active Substance: HYDROXYZINE HYDROCHLORIDE
  11. GABAPENTIN. [Concomitant]
     Active Substance: GABAPENTIN

REACTIONS (2)
  - Food interaction [Not Recovered/Not Resolved]
  - Pruritus [Not Recovered/Not Resolved]

NARRATIVE: CASE EVENT DATE: 201704
